FAERS Safety Report 10642117 (Version 3)
Quarter: 2015Q3

REPORT INFORMATION
  Report Type: Other
  Country: GB (occurrence: GB)
  Receive Date: 20141210
  Receipt Date: 20150928
  Transmission Date: 20151125
  Serious: Yes (Other)
  Sender: FDA-Public Use
  Company Number: GB-LUPIN PHARMACEUTICALS INC.-2014-01692

PATIENT
  Age: 50 Year
  Sex: Female

DRUGS (6)
  1. ERYTHROMYCIN. [Suspect]
     Active Substance: ERYTHROMYCIN
     Indication: INFECTION
     Route: 065
     Dates: start: 20141002, end: 20141003
  2. PARACETAMOL [Concomitant]
     Active Substance: ACETAMINOPHEN
     Indication: PRODUCT USED FOR UNKNOWN INDICATION
     Route: 065
  3. CEFALEXIN 500MG CAPSULES [Suspect]
     Active Substance: CEPHALEXIN
     Indication: INFECTION
     Route: 048
     Dates: start: 20141005, end: 20141007
  4. COCODAMOL [Concomitant]
     Active Substance: ACETAMINOPHEN\CODEINE PHOSPHATE
     Indication: PRODUCT USED FOR UNKNOWN INDICATION
     Route: 065
  5. NUROFEN [Concomitant]
     Active Substance: IBUPROFEN
     Indication: PRODUCT USED FOR UNKNOWN INDICATION
     Route: 065
  6. CLARITHROMYCIN. [Concomitant]
     Active Substance: CLARITHROMYCIN
     Indication: PRODUCT USED FOR UNKNOWN INDICATION
     Route: 065

REACTIONS (28)
  - Feeling abnormal [Recovering/Resolving]
  - Burning sensation [Recovered/Resolved with Sequelae]
  - Dyspnoea [Recovered/Resolved with Sequelae]
  - Chills [Recovered/Resolved with Sequelae]
  - Nausea [Recovered/Resolved with Sequelae]
  - Neck pain [Recovered/Resolved with Sequelae]
  - Back pain [Recovered/Resolved with Sequelae]
  - Vein disorder [Not Recovered/Not Resolved]
  - Nocturnal dyspnoea [Recovering/Resolving]
  - Local swelling [Recovering/Resolving]
  - Chest discomfort [Recovered/Resolved with Sequelae]
  - Swelling [Recovered/Resolved with Sequelae]
  - Tremor [Recovered/Resolved with Sequelae]
  - Hallucination [Recovering/Resolving]
  - Musculoskeletal pain [Recovered/Resolved with Sequelae]
  - Malaise [Recovered/Resolved with Sequelae]
  - Abdominal discomfort [Not Recovered/Not Resolved]
  - Asthenia [Recovered/Resolved with Sequelae]
  - Vagus nerve disorder [Recovered/Resolved with Sequelae]
  - Feeling abnormal [Recovering/Resolving]
  - Discomfort [Recovered/Resolved with Sequelae]
  - Feeling cold [Recovering/Resolving]
  - Dizziness [Recovered/Resolved with Sequelae]
  - Asthenia [Unknown]
  - Chest discomfort [Recovering/Resolving]
  - Skin tightness [Recovered/Resolved with Sequelae]
  - Facial pain [Recovered/Resolved with Sequelae]
  - Abdominal rigidity [Recovered/Resolved with Sequelae]

NARRATIVE: CASE EVENT DATE: 20141003
